FAERS Safety Report 9140897 (Version 1)
Quarter: 2013Q1

REPORT INFORMATION
  Report Type: Spontaneous
  Country: DE (occurrence: DE)
  Receive Date: 20130305
  Receipt Date: 20130305
  Transmission Date: 20140127
  Serious: Yes (Other)
  Sender: FDA-Public Use
  Company Number: CHPA2013DE003508

PATIENT
  Age: 27 Year
  Sex: Female
  Weight: 69 kg

DRUGS (1)
  1. NICOTINELL TTS [Suspect]
     Indication: SMOKING CESSATION THERAPY
     Dosage: 21 MG, QD
     Route: 062
     Dates: start: 20130207, end: 20130220

REACTIONS (6)
  - Rash generalised [Not Recovered/Not Resolved]
  - Rash pustular [Not Recovered/Not Resolved]
  - Generalised erythema [Not Recovered/Not Resolved]
  - Urticaria [Not Recovered/Not Resolved]
  - Application site erythema [Not Recovered/Not Resolved]
  - Application site pruritus [Not Recovered/Not Resolved]
